FAERS Safety Report 11788261 (Version 2)
Quarter: 2015Q4

REPORT INFORMATION
  Report Type: Spontaneous
  Country: US (occurrence: US)
  Receive Date: 20151201
  Receipt Date: 20151229
  Transmission Date: 20160305
  Serious: Yes (Hospitalization)
  Sender: FDA-Public Use
  Company Number: US-ROCHE-1607218

PATIENT
  Sex: Male
  Weight: 84.44 kg

DRUGS (1)
  1. ESBRIET [Suspect]
     Active Substance: PIRFENIDONE
     Indication: IDIOPATHIC PULMONARY FIBROSIS
     Dosage: 3 CAPSULES OF 267MG THREE TIMES A DAY
     Route: 048
     Dates: start: 20150330

REACTIONS (2)
  - Diabetes mellitus [Unknown]
  - Abdominal discomfort [Unknown]
